FAERS Safety Report 21878781 (Version 2)
Quarter: 2023Q1

REPORT INFORMATION
  Report Type: Spontaneous
  Country: IN (occurrence: IN)
  Receive Date: 20230118
  Receipt Date: 20230214
  Transmission Date: 20230418
  Serious: Yes (Other)
  Sender: FDA-Public Use
  Company Number: IN-PFIZER INC-PV202200002323

PATIENT
  Age: 52 Year
  Sex: Female

DRUGS (1)
  1. PALBOCICLIB [Suspect]
     Active Substance: PALBOCICLIB
     Indication: Breast cancer metastatic
     Dosage: 125 MG, 1X/DAY
     Route: 048
     Dates: start: 202202

REACTIONS (8)
  - Blood pressure increased [Unknown]
  - White blood cell count decreased [Unknown]
  - Vomiting [Unknown]
  - Gastric disorder [Unknown]
  - Pallor [Unknown]
  - Heart rate increased [Unknown]
  - Pain [Unknown]
  - Eastern Cooperative Oncology Group performance status worsened [Unknown]

NARRATIVE: CASE EVENT DATE: 20220101
